FAERS Safety Report 9827040 (Version 1)
Quarter: 2014Q1

REPORT INFORMATION
  Report Type: Spontaneous
  Country: US (occurrence: None)
  Receive Date: 20140115
  Receipt Date: 20140115
  Transmission Date: 20141002
  Serious: Yes (Hospitalization)
  Sender: FDA-Public Use
  Company Number: 2014AP000096

PATIENT
  Age: 27 Year
  Sex: Male

DRUGS (5)
  1. LITHIUM CARBONATE CAPSULES [Suspect]
     Indication: SCHIZOAFFECTIVE DISORDER
  2. RISPERDAL [Concomitant]
  3. HYDROXYZINE [Concomitant]
  4. TRAZODONE [Concomitant]
  5. ASENAPINE [Concomitant]

REACTIONS (5)
  - Hyperthyroidism [None]
  - Thyroiditis acute [None]
  - Weight increased [None]
  - Hallucination [None]
  - Tachycardia [None]
